FAERS Safety Report 4293627-1 (Version None)
Quarter: 2004Q1

REPORT INFORMATION
  Report Type: 
  Country: None (occurrence: None)
  Receive Date: 20040211
  Receipt Date: 20040128
  Transmission Date: 20041129
  Serious: Yes (Other)
  Sender: FDA-Public Use
  Company Number: USA031254320

PATIENT
  Age: 84 Year
  Sex: Male
  Weight: 103 kg

DRUGS (13)
  1. FORTEO [Suspect]
     Indication: OSTEOPOROSIS
     Dosage: 0.8 ML/DAY
     Dates: start: 20030426
  2. XOPENEX [Concomitant]
  3. DIOVAN [Concomitant]
  4. LIPITOR [Concomitant]
  5. FUROSEMDE [Concomitant]
  6. COUMADIN [Concomitant]
  7. WELLBUTRIN [Concomitant]
  8. POTASSIUM CHLORIDE [Concomitant]
  9. DARBEPOETIN ALFA [Concomitant]
  10. PREVACID [Concomitant]
  11. OXYCODONE HCL [Concomitant]
  12. HYDROCODONE [Concomitant]
  13. HUMIBID (GUAIFEENSIN) [Concomitant]

REACTIONS (3)
  - ACCIDENTAL OVERDOSE [None]
  - MEDICATION ERROR [None]
  - PELVIC FRACTURE [None]
